FAERS Safety Report 20438719 (Version 4)
Quarter: 2023Q2

REPORT INFORMATION
  Report Type: Spontaneous
  Country: US (occurrence: US)
  Receive Date: 20220207
  Receipt Date: 20230616
  Transmission Date: 20230722
  Serious: No
  Sender: FDA-Public Use
  Company Number: US-PFIZER INC-202200146181

PATIENT
  Age: 70 Year
  Sex: Female

DRUGS (3)
  1. IBRANCE [Suspect]
     Active Substance: PALBOCICLIB
     Indication: Hormone receptor positive HER2 negative breast cancer
     Dosage: 125 MG
     Dates: start: 20211230
  2. IBRANCE [Suspect]
     Active Substance: PALBOCICLIB
     Dosage: TAKE 1 TABLET (125 MG) DAILY BY MOUTH DAYS 1-21 EVERY 28 DAYS
     Route: 048
     Dates: start: 20221102
  3. IBRANCE [Suspect]
     Active Substance: PALBOCICLIB
     Dosage: 125 MG
     Dates: start: 20221212

REACTIONS (4)
  - Neoplasm progression [Unknown]
  - Gingival bleeding [Unknown]
  - Epistaxis [Unknown]
  - Coagulopathy [Unknown]
